FAERS Safety Report 14401630 (Version 1)
Quarter: 2018Q1

REPORT INFORMATION
  Report Type: Report from Study
  Country: MX (occurrence: MX)
  Receive Date: 20180117
  Receipt Date: 20180117
  Transmission Date: 20180509
  Serious: Yes (Death, Hospitalization)
  Sender: FDA-Public Use
  Company Number: PHHY2018MX006320

PATIENT
  Sex: Female

DRUGS (1)
  1. CO-DIOVAN [Suspect]
     Active Substance: HYDROCHLOROTHIAZIDE\VALSARTAN
     Indication: HYPERTENSION
     Dosage: 1 DF (HYDROCHLOROTHIAZIDE 25 MG, VALSARTAN 320 MG), BID
     Route: 065

REACTIONS (5)
  - Sepsis [Unknown]
  - Death [Fatal]
  - Pulmonary oedema [Unknown]
  - Inappropriate schedule of drug administration [Recovered/Resolved]
  - Thrombosis [Unknown]
